FAERS Safety Report 9953120 (Version 1)
Quarter: 2014Q1

REPORT INFORMATION
  Report Type: Spontaneous
  Country: GB (occurrence: GB)
  Receive Date: 20140304
  Receipt Date: 20140304
  Transmission Date: 20141002
  Serious: Yes (Other)
  Sender: FDA-Public Use
  Company Number: GB-IPSEN BIOPHARMACEUTICALS, INC.-2014-0963

PATIENT
  Sex: Female

DRUGS (4)
  1. AZZALURE [Suspect]
     Indication: SKIN COSMETIC PROCEDURE
     Dosage: 100 UNITS
     Route: 030
     Dates: start: 20140107, end: 20140107
  2. AZZALURE [Suspect]
     Indication: SKIN COSMETIC PROCEDURE
  3. AZZALURE [Suspect]
     Indication: SKIN WRINKLING
  4. AZZALURE [Suspect]
     Indication: OFF LABEL USE

REACTIONS (15)
  - Insomnia [Unknown]
  - Panic attack [Unknown]
  - Feeling abnormal [Unknown]
  - Anxiety [Unknown]
  - Eye pruritus [Unknown]
  - Abnormal sensation in eye [Unknown]
  - Dark circles under eyes [Unknown]
  - Swelling face [Unknown]
  - Periorbital oedema [Unknown]
  - Hangover [Unknown]
  - Fatigue [Unknown]
  - Asthenopia [Unknown]
  - Blepharospasm [Unknown]
  - Eyelid ptosis [Unknown]
  - Overdose [Unknown]
